FAERS Safety Report 13781062 (Version 1)
Quarter: 2017Q3

REPORT INFORMATION
  Report Type: Spontaneous
  Country: US (occurrence: US)
  Receive Date: 20170722
  Receipt Date: 20170722
  Transmission Date: 20171127
  Serious: Yes (Life-Threatening, Hospitalization)
  Sender: FDA-Public Use
  Company Number: None

PATIENT
  Age: 43 Year
  Sex: Male
  Weight: 101 kg

DRUGS (2)
  1. TESTOSTERONE GEL [Suspect]
     Active Substance: TESTOSTERONE
     Indication: BLOOD TESTOSTERONE DECREASED
     Dosage: ?          OTHER DOSE:MG;OTHER FREQUENCY:EVERY 14 DAYS;?
     Route: 061
     Dates: start: 20170520, end: 20170617
  2. TESTOSTERONE. [Suspect]
     Active Substance: TESTOSTERONE
     Indication: BLOOD TESTOSTERONE DECREASED
     Dosage: ?          OTHER DOSE:MG;OTHER FREQUENCY:EVERY 14 DAYS;?
     Route: 061
     Dates: start: 20170520, end: 20170617

REACTIONS (9)
  - Rib fracture [None]
  - Joint injury [None]
  - Haematoma [None]
  - Pain [None]
  - Splenic rupture [None]
  - Accident [None]
  - Haematuria [None]
  - Traumatic renal injury [None]
  - Insomnia [None]

NARRATIVE: CASE EVENT DATE: 20170628
